FAERS Safety Report 10144703 (Version 1)
Quarter: 2014Q2

REPORT INFORMATION
  Report Type: Spontaneous
  Country: US (occurrence: US)
  Receive Date: 20140430
  Receipt Date: 20140430
  Transmission Date: 20141212
  Serious: No
  Sender: FDA-Public Use
  Company Number: US-SA-2013SA118333

PATIENT
  Age: 65 Year
  Sex: Female

DRUGS (2)
  1. LOVENOX [Suspect]
     Route: 065
  2. ASPIRIN [Concomitant]

REACTIONS (1)
  - Contusion [Unknown]
